FAERS Safety Report 7568767-1 (Version None)
Quarter: 2011Q2

REPORT INFORMATION
  Report Type: 
  Country: None (occurrence: None)
  Receive Date: 20110623
  Receipt Date: 20110621
  Transmission Date: 20111010
  Serious: Yes (Hospitalization)
  Sender: FDA-Public Use
  Company Number: GB-TEVA-287527ISR

PATIENT
  Age: 6 Decade
  Sex: Female

DRUGS (4)
  1. TRABECTEDIN [Suspect]
     Indication: OVARIAN CANCER RECURRENT
     Dosage: 1.1 MILLIGRAM;
     Route: 042
     Dates: start: 20110201
  2. TRABECTEDIN [Suspect]
     Dosage: 1.1 MILLIGRAM;
     Route: 042
  3. DOXORUBICIN HCL [Suspect]
     Indication: OVARIAN CANCER RECURRENT
     Dosage: 30 MILLIGRAM;
     Dates: start: 20110201
  4. DOXORUBICIN HCL [Suspect]
     Dosage: 30 MILLIGRAM;

REACTIONS (1)
  - ARTERIAL THROMBOSIS LIMB [None]
